FAERS Safety Report 15979670 (Version 1)
Quarter: 2019Q1

REPORT INFORMATION
  Report Type: Spontaneous
  Country: EC (occurrence: EC)
  Receive Date: 20190217
  Receipt Date: 20190217
  Transmission Date: 20190418
  Serious: Yes (Disabling)
  Sender: FDA-Public Use
  Company Number: None

PATIENT
  Age: 30 Year
  Sex: Male
  Weight: 65 kg

DRUGS (3)
  1. MIRTAPAX [Concomitant]
  2. PREGABALINA [Concomitant]
     Active Substance: PREGABALIN
  3. PROTOLIF 40MG [Suspect]
     Active Substance: PROPRANOLOL HYDROCHLORIDE
     Indication: EXTRASYSTOLES
     Dosage: ?          QUANTITY:1 TABLET(S);?
     Route: 048

REACTIONS (1)
  - Heart rate irregular [None]

NARRATIVE: CASE EVENT DATE: 20190217
